FAERS Safety Report 24837422 (Version 1)
Quarter: 2025Q1

REPORT INFORMATION
  Report Type: Spontaneous
  Country: US (occurrence: US)
  Receive Date: 20250113
  Receipt Date: 20250113
  Transmission Date: 20250409
  Serious: Yes (Other)
  Sender: MERCK
  Company Number: US-009507513-2501USA002675

PATIENT
  Age: 39 Year
  Sex: Female

DRUGS (1)
  1. KEYTRUDA [Suspect]
     Active Substance: PEMBROLIZUMAB
     Indication: Naevoid melanoma
     Dosage: 200 MILLIGRAMS, EVERY 3 WEEKS (Q3W)
     Dates: start: 201908

REACTIONS (1)
  - Acquired generalised lipodystrophy [Unknown]

NARRATIVE: CASE EVENT DATE: 20200101
